FAERS Safety Report 7089073-8 (Version None)
Quarter: 2010Q4

REPORT INFORMATION
  Report Type: 
  Country: None (occurrence: None)
  Receive Date: 20101108
  Receipt Date: 20101027
  Transmission Date: 20110411
  Serious: Yes (Hospitalization)
  Sender: FDA-Public Use
  Company Number: B0682818A

PATIENT
  Sex: Female

DRUGS (7)
  1. LANOXIN [Suspect]
     Indication: ARRHYTHMIA
     Route: 048
     Dates: start: 20100101, end: 20101012
  2. COUMADIN [Suspect]
     Indication: PROPHYLAXIS
     Route: 048
     Dates: start: 20100101, end: 20101012
  3. VERAPAMIL [Concomitant]
     Route: 065
  4. UNKNOWN DRUG [Concomitant]
  5. CALCIFEDIOL [Concomitant]
     Dosage: 10DROP PER DAY
     Route: 048
  6. VITAMIN K TAB [Concomitant]
     Route: 042
  7. SELEPARINA [Concomitant]
     Route: 058

REACTIONS (3)
  - INTERNATIONAL NORMALISED RATIO INCREASED [None]
  - RENAL FAILURE ACUTE [None]
  - THERAPEUTIC AGENT TOXICITY [None]
